FAERS Safety Report 5386188-7 (Version None)
Quarter: 2007Q3

REPORT INFORMATION
  Report Type: 
  Country: None (occurrence: None)
  Receive Date: 20070710
  Receipt Date: 20070625
  Transmission Date: 20080115
  Serious: No
  Sender: FDA-Public Use
  Company Number: US020385

PATIENT
  Age: 2 Year
  Sex: Male
  Weight: 18.18 kg

DRUGS (1)
  1. ACTIQ [Suspect]
     Dosage: 400 MG ONCE BUCCAL
     Route: 002
     Dates: start: 20060920, end: 20060920

REACTIONS (1)
  - ACCIDENTAL DRUG INTAKE BY CHILD [None]
